FAERS Safety Report 18745646 (Version 1)
Quarter: 2021Q1

REPORT INFORMATION
  Report Type: Report from Study
  Country: JP (occurrence: JP)
  Receive Date: 20210115
  Receipt Date: 20210115
  Transmission Date: 20210419
  Serious: Yes (Hospitalization)
  Sender: FDA-Public Use
  Company Number: JP-PFIZER INC-2021008820

PATIENT
  Age: 71 Year
  Sex: Male
  Weight: 65.6 kg

DRUGS (13)
  1. BRAFTOVI [Suspect]
     Active Substance: ENCORAFENIB
     Indication: COLON CANCER
     Dosage: 300 MG, EVERYDAY
     Route: 048
     Dates: start: 20201119, end: 20210104
  2. LOPERAMIDE HYDROCHLORIDE. [Concomitant]
     Active Substance: LOPERAMIDE HYDROCHLORIDE
     Indication: DIARRHOEA
     Dosage: 2 MG, AS NEEDED
     Route: 048
     Dates: start: 20201228
  3. HIRUDOID [Concomitant]
     Active Substance: GLYCOSAMINOGLYCANS
     Indication: DERMATITIS ACNEIFORM
  4. MEKTOVI [Suspect]
     Active Substance: BINIMETINIB
     Indication: COLON CANCER
     Dosage: 90 MG, EVERYDAY
     Route: 048
     Dates: start: 20201119, end: 20210104
  5. DEXART [Concomitant]
     Active Substance: DEXAMETHASONE SODIUM PHOSPHATE
     Indication: PROPHYLAXIS OF NAUSEA AND VOMITING
     Dosage: 6.6 MG, AS NEEDED
     Route: 042
     Dates: start: 20201119
  6. CETUXIMAB. [Suspect]
     Active Substance: CETUXIMAB
     Dosage: 250 MG/M2
     Route: 065
     Dates: start: 20201119
  7. ALLOPURINOL. [Concomitant]
     Active Substance: ALLOPURINOL
     Indication: HYPERTENSION
     Dosage: 100 MG, EVERYDAY
     Route: 048
     Dates: start: 2012
  8. POLARAMINE [Concomitant]
     Active Substance: DEXCHLORPHENIRAMINE MALEATE
     Indication: ALLERGY PROPHYLAXIS
     Dosage: 5 MG, AS NEEDED
     Route: 042
     Dates: start: 20201119
  9. AMVALO [Concomitant]
     Active Substance: AMLODIPINE BESYLATE\VALSARTAN
     Indication: HYPERTENSION
     Dosage: 1 DF, EVERYDAY
     Route: 048
     Dates: start: 20201109
  10. RINDERON V [Concomitant]
     Active Substance: BETAMETHASONE VALERATE
     Indication: DERMATITIS ACNEIFORM
     Dosage: ADEQUATE DOSE ON AN AS?NEEDED BASIS
     Route: 061
     Dates: start: 20201201
  11. RINDERON V [Concomitant]
     Active Substance: BETAMETHASONE VALERATE
     Dosage: ADEQUATE DOSE ON AN AS?NEEDED BASIS
     Route: 061
     Dates: start: 20201228
  12. BORRAZA?G [Concomitant]
     Active Substance: LIDOCAINE\TRIBENOSIDE
     Indication: ANAL FISSURE
     Dosage: ADEQUATE DOSE ON AN AS?NEEDED BASIS
     Route: 061
     Dates: start: 20201222
  13. HIRUDOID [Concomitant]
     Active Substance: GLYCOSAMINOGLYCANS
     Indication: DRY SKIN PROPHYLAXIS
     Dosage: ADEQUATE DOSE ON AN AS?NEEDED BASIS
     Route: 061
     Dates: start: 20201119

REACTIONS (1)
  - Decreased appetite [Recovered/Resolved]

NARRATIVE: CASE EVENT DATE: 20210104
